FAERS Safety Report 13294423 (Version 4)
Quarter: 2017Q2

REPORT INFORMATION
  Report Type: Spontaneous
  Country: GB (occurrence: GB)
  Receive Date: 20170303
  Receipt Date: 20170428
  Transmission Date: 20170830
  Serious: Yes (Hospitalization, Other)
  Sender: FDA-Public Use
  Company Number: GB-MYLANLABS-2017M1013735

PATIENT

DRUGS (2)
  1. CLOZARIL [Suspect]
     Active Substance: CLOZAPINE
     Indication: SCHIZOPHRENIA
     Dosage: UNK
     Route: 048
     Dates: start: 19900523
  2. CLOZARIL [Suspect]
     Active Substance: CLOZAPINE
     Dosage: UNK
     Route: 048
     Dates: start: 20010701

REACTIONS (7)
  - Cardiac fibrillation [Unknown]
  - Pneumonia aspiration [Unknown]
  - Device deployment issue [Unknown]
  - Therapy cessation [Unknown]
  - Treatment noncompliance [Unknown]
  - Drug dose omission [Unknown]
  - Mental impairment [Unknown]

NARRATIVE: CASE EVENT DATE: 20170313
